FAERS Safety Report 16205145 (Version 1)
Quarter: 2019Q2

REPORT INFORMATION
  Report Type: Report from Study
  Country: US (occurrence: US)
  Receive Date: 20190416
  Receipt Date: 20190416
  Transmission Date: 20190711
  Serious: No
  Sender: FDA-Public Use
  Company Number: PHEH2019US015948

PATIENT
  Age: 58 Year
  Sex: Female

DRUGS (2)
  1. COSENTYX [Suspect]
     Active Substance: SECUKINUMAB
     Indication: PRODUCT USED FOR UNKNOWN INDICATION
     Dosage: 300 MG, QW
     Route: 058
     Dates: start: 20190326
  2. COSENTYX [Suspect]
     Active Substance: SECUKINUMAB
     Dosage: UNK (THIRD DOSE)
     Route: 058
     Dates: start: 20190409

REACTIONS (3)
  - Urticaria [Unknown]
  - Pruritus [Unknown]
  - Macule [Not Recovered/Not Resolved]

NARRATIVE: CASE EVENT DATE: 20190409
